FAERS Safety Report 7374104-8 (Version None)
Quarter: 2011Q1

REPORT INFORMATION
  Report Type: 
  Country: None (occurrence: None)
  Receive Date: 20110325
  Receipt Date: 20110225
  Transmission Date: 20110831
  Serious: No
  Sender: FDA-Public Use
  Company Number: US-B.I. PHARMACEUTICALS,INC./RIDGEFIELD-2011-BP-06935BP

PATIENT
  Sex: Male

DRUGS (20)
  1. FUROSEMIDE [Concomitant]
     Indication: CARDIAC FAILURE CONGESTIVE
  2. GABAPENTIN [Concomitant]
     Indication: NEUROPATHY PERIPHERAL
  3. PRADAXA [Suspect]
     Indication: ATRIAL FIBRILLATION
     Dosage: 150 MG
     Route: 048
     Dates: start: 20110219
  4. ISOSORBIDE DINITRATE [Concomitant]
     Indication: ANGINA PECTORIS
  5. LANTUS [Concomitant]
     Indication: DIABETES MELLITUS
  6. ASPIRIN [Concomitant]
     Indication: CARDIAC DISORDER
     Dosage: 81 MG
  7. CRESTOR [Concomitant]
     Indication: BLOOD CHOLESTEROL INCREASED
  8. COZAAR [Concomitant]
     Indication: HYPERTENSION
  9. POTASSIUM CHLORIDE [Concomitant]
  10. LEVOTHYROXINE SODIUM [Concomitant]
     Indication: HYPOTHYROIDISM
  11. NIACIN [Concomitant]
  12. VIT D [Concomitant]
  13. NITROGLYCERIN [Concomitant]
     Indication: ANGINA PECTORIS
  14. ZEMPLAR [Concomitant]
     Indication: HYPOTHYROIDISM
  15. NORVASC [Concomitant]
     Indication: HYPERTENSION
  16. DIABETA [Concomitant]
     Indication: DIABETES MELLITUS
  17. PRANDIN [Concomitant]
     Indication: DIABETES MELLITUS
  18. METOCLOPRAMIDE [Concomitant]
     Indication: HYPERCHLORHYDRIA
  19. METOPROLOL [Concomitant]
     Indication: HYPERTENSION
  20. FUROSEMIDE [Concomitant]
     Indication: HYPERTENSION

REACTIONS (1)
  - BLOOD GLUCOSE INCREASED [None]
